FAERS Safety Report 16992396 (Version 2)
Quarter: 2025Q1

REPORT INFORMATION
  Report Type: Report from Study
  Country: ES (occurrence: ES)
  Receive Date: 20191105
  Receipt Date: 20250321
  Transmission Date: 20250408
  Serious: Yes (Other)
  Sender: AUROBINDO
  Company Number: ES-AUROBINDO-AUR-APL-2019-070508

PATIENT
  Age: 37 Year
  Sex: Male

DRUGS (3)
  1. TENOFOVIR DISOPROXIL [Suspect]
     Active Substance: TENOFOVIR DISOPROXIL
     Indication: HIV-2 infection
     Route: 065
  2. EMTRICITABINE [Suspect]
     Active Substance: EMTRICITABINE
     Indication: HIV-2 infection
     Route: 065
  3. RALTEGRAVIR [Suspect]
     Active Substance: RALTEGRAVIR
     Indication: HIV-2 infection
     Route: 065

REACTIONS (3)
  - Gene mutation [Unknown]
  - Drug resistance [Unknown]
  - Treatment failure [Unknown]
